FAERS Safety Report 16991456 (Version 1)
Quarter: 2019Q4

REPORT INFORMATION
  Report Type: Spontaneous
  Country: US (occurrence: US)
  Receive Date: 20191104
  Receipt Date: 20191104
  Transmission Date: 20200122
  Serious: No
  Sender: FDA-Public Use
  Company Number: US-AMNEAL PHARMACEUTICALS-2018-IPXL-03657

PATIENT
  Age: 39 Year
  Sex: Male

DRUGS (2)
  1. PYRIDOSTIGMINE BROMIDE. [Suspect]
     Active Substance: PYRIDOSTIGMINE BROMIDE
     Indication: MYASTHENIA GRAVIS
     Dosage: 180 MILLIGRAM, ONE TABLET AT BEDTIME
     Route: 048
     Dates: start: 201810
  2. PYRIDOSTIGMINE [Concomitant]
     Active Substance: PYRIDOSTIGMINE
     Indication: MYASTHENIA GRAVIS
     Dosage: 60 MG, TWO TABLET AT 8 AM, ONE TABLET AT 12 PM, ONE TABLET AT 4 PM, AND ONE TABLET AT 8 PM
     Route: 048

REACTIONS (4)
  - Feeling abnormal [Unknown]
  - Product residue present [Not Recovered/Not Resolved]
  - Therapeutic product effect incomplete [Unknown]
  - Product substitution issue [Unknown]

NARRATIVE: CASE EVENT DATE: 201810
